FAERS Safety Report 4657975-5 (Version None)
Quarter: 2005Q2

REPORT INFORMATION
  Report Type: 
  Country: None (occurrence: None)
  Receive Date: 20050510
  Receipt Date: 20050504
  Transmission Date: 20051028
  Serious: Yes (Life-Threatening, Hospitalization)
  Sender: FDA-Public Use
  Company Number: FR-ABBOTT-05P-056-0299871-00

PATIENT
  Age: 39 Year
  Sex: Male

DRUGS (4)
  1. DEPAKOTE [Suspect]
     Indication: DRUG USE FOR UNKNOWN INDICATION
     Route: 048
     Dates: start: 20040612, end: 20040612
  2. ACAMPROSATE [Concomitant]
     Indication: DRUG USE FOR UNKNOWN INDICATION
     Route: 048
     Dates: end: 20040612
  3. HYDROXYZINE HYDROCHLORIDE [Concomitant]
     Indication: DRUG USE FOR UNKNOWN INDICATION
     Route: 048
     Dates: end: 20040612
  4. PAROXETINE HYDROCHLORIDE [Concomitant]
     Indication: DRUG USE FOR UNKNOWN INDICATION
     Route: 048
     Dates: end: 20040612

REACTIONS (5)
  - COMA [None]
  - DIABETES INSIPIDUS [None]
  - DRUG LEVEL INCREASED [None]
  - HYPOTHERMIA [None]
  - INTENTIONAL MISUSE [None]
